FAERS Safety Report 8517960-X (Version None)
Quarter: 2012Q3

REPORT INFORMATION
  Report Type: 
  Country: None (occurrence: None)
  Receive Date: 20120718
  Receipt Date: 20120709
  Transmission Date: 20120928
  Serious: Yes (Other)
  Sender: FDA-Public Use
  Company Number: US-ASTELLAS-2012US006231

PATIENT

DRUGS (2)
  1. GANITUMAB [Suspect]
     Indication: NEOPLASM
     Dosage: 12 MG/KG, Q2W
     Route: 042
  2. ERLOTINIB HYDROCHLORIDE [Suspect]
     Indication: NEOPLASM
     Dosage: 150 MG, UID/QD
     Route: 048

REACTIONS (1)
  - INTESTINAL OBSTRUCTION [None]
